FAERS Safety Report 24430117 (Version 2)
Quarter: 2025Q1

REPORT INFORMATION
  Report Type: Spontaneous
  Country: US (occurrence: US)
  Receive Date: 20241013
  Receipt Date: 20250205
  Transmission Date: 20250409
  Serious: No
  Sender: SANOFI AVENTIS
  Company Number: US-SA-2024SA291930

PATIENT
  Age: 73 Year
  Sex: Male

DRUGS (2)
  1. LANTUS SOLOSTAR [Suspect]
     Active Substance: INSULIN GLARGINE
     Indication: Type 2 diabetes mellitus
     Dosage: 50 UNITS IN MORNING AND 60 UNITS IN THE EVENING DAILY
     Dates: start: 202401
  2. LANTUS SOLOSTAR [Suspect]
     Active Substance: INSULIN GLARGINE
     Dosage: 30 IU, BID (30 UNITS IN THE MORNING AND 30 UNITS AT NIGHT)

REACTIONS (1)
  - Off label use [Unknown]
